FAERS Safety Report 10600822 (Version 1)
Quarter: 2014Q4

REPORT INFORMATION
  Report Type: Spontaneous
  Country: US (occurrence: None)
  Receive Date: 20141121
  Receipt Date: 20141121
  Transmission Date: 20150529
  Serious: Yes (Death)
  Sender: FDA-Public Use
  Company Number: None

PATIENT
  Age: 77 Year
  Sex: Female
  Weight: 72.58 kg

DRUGS (1)
  1. XARELTO [Suspect]
     Active Substance: RIVAROXABAN
     Indication: ANGINA PECTORIS
     Dosage: 1 YEAR ESTIAMTE??
     Route: 048

REACTIONS (7)
  - Road traffic accident [None]
  - Wound [None]
  - Multiple injuries [None]
  - Swelling [None]
  - Pain [None]
  - General physical health deterioration [None]
  - Gastrointestinal haemorrhage [None]

NARRATIVE: CASE EVENT DATE: 20140526
